FAERS Safety Report 18497871 (Version 2)
Quarter: 2021Q1

REPORT INFORMATION
  Report Type: Spontaneous
  Country: US (occurrence: US)
  Receive Date: 20201112
  Receipt Date: 20210219
  Transmission Date: 20210419
  Serious: No
  Sender: FDA-Public Use
  Company Number: US-THERAPEUTICSMD-2020TMD04687

PATIENT
  Age: 66 Year
  Sex: Female
  Weight: 77.1 kg

DRUGS (4)
  1. GABAPENTIN. [Concomitant]
     Active Substance: GABAPENTIN
     Dosage: TAKES 100MG/DAY BUT IS SCHEDULED 3X/DAY
  2. BIJUVA [Suspect]
     Active Substance: ESTRADIOL\PROGESTERONE
     Indication: VULVOVAGINAL DRYNESS
     Dosage: 1 CAPSULES, 1X/DAY
     Route: 048
     Dates: start: 202005
  3. ANTACIDS [Concomitant]
     Active Substance: UNSPECIFIED INGREDIENT
  4. PROLIA [Concomitant]
     Active Substance: DENOSUMAB
     Dosage: UNK, 2X/YEAR

REACTIONS (3)
  - Off label use [Not Recovered/Not Resolved]
  - Product dose omission issue [Recovered/Resolved]
  - Breast tenderness [Recovered/Resolved]

NARRATIVE: CASE EVENT DATE: 202005
